FAERS Safety Report 5329015-6 (Version None)
Quarter: 2007Q2

REPORT INFORMATION
  Report Type: 
  Country: None (occurrence: None)
  Receive Date: 20070518
  Receipt Date: 20070511
  Transmission Date: 20071010
  Serious: Yes (Hospitalization, Disabling, Other)
  Sender: FDA-Public Use
  Company Number: US-PFIZER INC-2004090133

PATIENT
  Sex: Male
  Weight: 86.2 kg

DRUGS (4)
  1. NARDIL [Suspect]
     Indication: DEPRESSION
     Route: 048
     Dates: start: 19870101, end: 20060701
  2. NARDIL [Suspect]
     Indication: SOCIAL PHOBIA
  3. KLONOPIN [Concomitant]
     Route: 048
  4. DIAZEPAM [Concomitant]
     Indication: ANXIETY

REACTIONS (17)
  - ANXIETY [None]
  - DEPRESSED MOOD [None]
  - DEPRESSION [None]
  - DIABETES MELLITUS [None]
  - DISABILITY [None]
  - DRUG DEPENDENCE [None]
  - DRUG INEFFECTIVE [None]
  - DRUG WITHDRAWAL SYNDROME [None]
  - ELEVATED MOOD [None]
  - HYPERTENSION [None]
  - INSOMNIA [None]
  - LOSS OF EMPLOYMENT [None]
  - MALAISE [None]
  - MENTAL DISORDER [None]
  - MENTAL IMPAIRMENT [None]
  - SOCIAL AVOIDANT BEHAVIOUR [None]
  - SUICIDAL IDEATION [None]
